FAERS Safety Report 6540268-9 (Version None)
Quarter: 2010Q1

REPORT INFORMATION
  Report Type: 
  Country: None (occurrence: None)
  Receive Date: 20100115
  Receipt Date: 20090116
  Transmission Date: 20100710
  Serious: No
  Sender: FDA-Public Use
  Company Number: US-ABBOTT-09P-163-0498528-00

PATIENT
  Sex: Male
  Weight: 93.07 kg

DRUGS (12)
  1. ADVICOR [Suspect]
     Indication: BLOOD CHOLESTEROL INCREASED
     Dosage: 1000/20 MG 1 IN 1 DAYS
     Route: 048
     Dates: start: 20030101, end: 20081201
  2. SIMCOR [Suspect]
     Indication: BLOOD CHOLESTEROL INCREASED
     Dosage: 1000/20 MG 1 IN 1 DAYS
     Route: 048
     Dates: start: 20081201
  3. WARFARIN [Concomitant]
     Indication: HEART RATE IRREGULAR
     Route: 048
     Dates: start: 20080101, end: 20080101
  4. WARFARIN [Concomitant]
     Route: 048
     Dates: start: 20090101
  5. WARFARIN [Concomitant]
     Route: 048
     Dates: start: 20090101
  6. WARFARIN [Concomitant]
     Route: 048
  7. WARFARIN [Concomitant]
     Route: 048
  8. WARFARIN [Concomitant]
     Route: 048
  9. WARFARIN [Concomitant]
     Route: 048
  10. METOPROLOL [Concomitant]
     Indication: HEART RATE IRREGULAR
     Route: 048
  11. ASPIRIN [Concomitant]
     Indication: DRUG USE FOR UNKNOWN INDICATION
  12. FOLIC ACID [Concomitant]
     Indication: DRUG USE FOR UNKNOWN INDICATION

REACTIONS (2)
  - HIGH DENSITY LIPOPROTEIN ABNORMAL [None]
  - INTERNATIONAL NORMALISED RATIO FLUCTUATION [None]
